FAERS Safety Report 5255177-5 (Version None)
Quarter: 2007Q1

REPORT INFORMATION
  Report Type: 
  Country: None (occurrence: None)
  Receive Date: 20070305
  Receipt Date: 20070221
  Transmission Date: 20070707
  Serious: Yes (Other)
  Sender: FDA-Public Use
  Company Number: GB-NOVOPROD-261032

PATIENT
  Age: 11 Year
  Weight: 60 kg

DRUGS (3)
  1. LEVEMIR [Suspect]
     Indication: DIABETES MELLITUS INSULIN-DEPENDENT
     Dosage: 18 IU, QD
     Route: 058
     Dates: start: 20061111, end: 20061121
  2. NOVOMIX 30 [Concomitant]
     Indication: DIABETES MELLITUS INSULIN-DEPENDENT
     Dosage: 32 IU, QD
     Route: 058
     Dates: start: 20061111
  3. NOVORAPID [Concomitant]
     Indication: DIABETES MELLITUS INSULIN-DEPENDENT
     Dosage: 9 IU, QD
     Route: 058
     Dates: start: 20061111, end: 20061121

REACTIONS (6)
  - BODY MASS INDEX INCREASED [None]
  - INJECTION SITE MASS [None]
  - INJECTION SITE PAIN [None]
  - INJECTION SITE PRURITUS [None]
  - VOMITING [None]
  - WEIGHT DECREASED [None]
